FAERS Safety Report 23251682 (Version 2)
Quarter: 2024Q1

REPORT INFORMATION
  Report Type: Spontaneous
  Country: KW (occurrence: KW)
  Receive Date: 20231201
  Receipt Date: 20240129
  Transmission Date: 20240410
  Serious: Yes (Other)
  Sender: FDA-Public Use
  Company Number: KW-PFIZER INC-PV202300193427

PATIENT
  Age: 19 Year
  Sex: Male

DRUGS (5)
  1. GEMTUZUMAB OZOGAMICIN [Suspect]
     Active Substance: GEMTUZUMAB OZOGAMICIN
     Dosage: UNK
  2. CYTARABINE [Suspect]
     Active Substance: CYTARABINE
     Dosage: UNK
  3. ACETAMINOPHEN [Concomitant]
     Active Substance: ACETAMINOPHEN
     Indication: Premedication
     Dosage: UNK
  4. DIPHENHYDRAMINE [Concomitant]
     Active Substance: DIPHENHYDRAMINE
     Indication: Premedication
     Dosage: UNK
  5. METHYLPREDNISOLONE [Concomitant]
     Active Substance: METHYLPREDNISOLONE
     Indication: Premedication
     Dosage: UNK

REACTIONS (7)
  - Anal fistula [Unknown]
  - Abscess [Unknown]
  - Chills [Recovered/Resolved]
  - Body temperature increased [Recovered/Resolved]
  - Blood pressure diastolic decreased [Recovered/Resolved]
  - Haemoglobin decreased [Unknown]
  - Platelet count decreased [Unknown]
